FAERS Safety Report 7174512-4 (Version None)
Quarter: 2010Q4

REPORT INFORMATION
  Report Type: 
  Country: None (occurrence: None)
  Receive Date: 20101219
  Receipt Date: 20101208
  Transmission Date: 20110411
  Serious: No
  Sender: FDA-Public Use
  Company Number: US-ROXANE LABORATORIES, INC.-2010-RO-01601RO

PATIENT
  Sex: Female

DRUGS (3)
  1. MORPHINE [Suspect]
     Indication: PAIN
     Dosage: 30 MG
     Route: 048
  2. TYLENOL (CAPLET) [Concomitant]
  3. PSYLLIUM [Concomitant]
     Indication: PHYTOTHERAPY

REACTIONS (1)
  - CONSTIPATION [None]
